FAERS Safety Report 5028101-8 (Version None)
Quarter: 2006Q2

REPORT INFORMATION
  Report Type: 
  Country: None (occurrence: None)
  Receive Date: 20060613
  Receipt Date: 20060605
  Transmission Date: 20061013
  Serious: Yes (Other)
  Sender: FDA-Public Use
  Company Number: S06-USA-02209-01

PATIENT
  Age: 45 Year
  Sex: Male

DRUGS (6)
  1. CELEXA [Suspect]
     Indication: MAJOR DEPRESSION
     Dosage: 30 MG QD PO
     Route: 048
     Dates: start: 20030101, end: 20060501
  2. CELEXA [Suspect]
     Indication: MAJOR DEPRESSION
     Dosage: 20 MG QD PO
     Route: 048
     Dates: start: 20060501
  3. CELEXA [Suspect]
     Indication: MAJOR DEPRESSION
     Dosage: 10 MG QD PO
     Route: 048
     Dates: start: 19991020, end: 19991026
  4. CELEXA [Suspect]
     Indication: MAJOR DEPRESSION
     Dosage: 20 MG QD PO
     Route: 048
     Dates: start: 19991027, end: 20030101
  5. TRAZODONE HCL [Concomitant]
  6. FOSAMAX [Concomitant]

REACTIONS (1)
  - TARDIVE DYSKINESIA [None]
